FAERS Safety Report 19233276 (Version 1)
Quarter: 2021Q2

REPORT INFORMATION
  Report Type: Spontaneous
  Country: US (occurrence: US)
  Receive Date: 20210507
  Receipt Date: 20210507
  Transmission Date: 20210717
  Serious: No
  Sender: FDA-Public Use
  Company Number: US-TAKEDA-2021TUS028232

PATIENT
  Sex: Male

DRUGS (5)
  1. FOSRENOL [Suspect]
     Active Substance: LANTHANUM CARBONATE
     Indication: RENAL DISORDER
     Dosage: 500 MILLIGRAM, BID WITH MEALS
     Route: 048
     Dates: start: 20210427
  2. THYROID [Concomitant]
     Active Substance: LEVOTHYROXINE\LIOTHYRONINE
     Indication: RENAL FAILURE
     Dosage: UNK
     Route: 065
     Dates: start: 20210424
  3. CALCIUM [Concomitant]
     Active Substance: CALCIUM
     Indication: RENAL FAILURE
     Dosage: UNK
     Route: 065
     Dates: start: 20210427
  4. OMEPRAZOLE. [Concomitant]
     Active Substance: OMEPRAZOLE
     Route: 065
  5. IRON [Concomitant]
     Active Substance: IRON
     Indication: RENAL FAILURE
     Dosage: UNK
     Route: 065
     Dates: start: 20210427

REACTIONS (2)
  - No adverse event [Unknown]
  - Intentional product use issue [Unknown]

NARRATIVE: CASE EVENT DATE: 20210427
